FAERS Safety Report 16338152 (Version 2)
Quarter: 2019Q2

REPORT INFORMATION
  Report Type: Spontaneous
  Country: PT (occurrence: PT)
  Receive Date: 20190521
  Receipt Date: 20190603
  Transmission Date: 20190711
  Serious: Yes (Other)
  Sender: FDA-Public Use
  Company Number: PT-BAUSCH-BL-2019-014637

PATIENT
  Age: 23 Year
  Sex: Female

DRUGS (1)
  1. MESALAZINE [Suspect]
     Active Substance: MESALAMINE
     Indication: COLITIS ULCERATIVE
     Route: 065
     Dates: start: 2013

REACTIONS (2)
  - Organising pneumonia [Recovered/Resolved]
  - Pulmonary toxicity [Recovered/Resolved]
